FAERS Safety Report 9351141 (Version 2)
Quarter: 2013Q4

REPORT INFORMATION
  Report Type: Spontaneous
  Country: US (occurrence: US)
  Receive Date: 20130617
  Receipt Date: 20131206
  Transmission Date: 20140711
  Serious: Yes (Other)
  Sender: FDA-Public Use
  Company Number: US-BAYER-2013-072709

PATIENT
  Age: 35 Year
  Sex: Female
  Weight: 52.15 kg

DRUGS (2)
  1. MIRENA [Suspect]
     Indication: CONTRACEPTION
     Dosage: 20 MCG/24HR, CONT
     Route: 015
     Dates: start: 20080828, end: 20090629
  2. EXCEDRIN [CAFFEINE,PARACETAMOL] [Concomitant]

REACTIONS (4)
  - Abortion spontaneous [None]
  - Pain [None]
  - Depression [None]
  - Menorrhagia [None]
